FAERS Safety Report 5946536-3 (Version None)
Quarter: 2008Q4

REPORT INFORMATION
  Report Type: 
  Country: None (occurrence: None)
  Receive Date: 20081110
  Receipt Date: 20081031
  Transmission Date: 20090506
  Serious: Yes (Other)
  Sender: FDA-Public Use
  Company Number: B0545115A

PATIENT
  Age: 33 Year
  Sex: Female

DRUGS (4)
  1. ARIXTRA [Suspect]
     Indication: PROPHYLAXIS
     Dosage: 2.5MG PER DAY
     Route: 065
  2. NSAID [Concomitant]
     Route: 065
  3. TRAMADOLO [Concomitant]
     Route: 065
  4. ANTIDEPRESSANT [Concomitant]
     Route: 065

REACTIONS (2)
  - COAGULATION FACTOR DECREASED [None]
  - COAGULATION TIME PROLONGED [None]
